FAERS Safety Report 8153046-4 (Version None)
Quarter: 2012Q1

REPORT INFORMATION
  Report Type: 
  Country: None (occurrence: None)
  Receive Date: 20120221
  Receipt Date: 20120211
  Transmission Date: 20120608
  Serious: Yes (Hospitalization, Other)
  Sender: FDA-Public Use
  Company Number: US-CELGENEUS-163-21880-12021682

PATIENT
  Sex: Male

DRUGS (2)
  1. REVLIMID [Suspect]
     Indication: MYELODYSPLASTIC SYNDROME
     Dosage: 5 MILLIGRAM
     Route: 048
     Dates: start: 20111110
  2. EXJADE [Concomitant]
     Route: 065

REACTIONS (7)
  - FLATULENCE [None]
  - INFECTION [None]
  - FULL BLOOD COUNT DECREASED [None]
  - GASTROOESOPHAGEAL REFLUX DISEASE [None]
  - IRON OVERLOAD [None]
  - CONSTIPATION [None]
  - FATIGUE [None]
